FAERS Safety Report 17454278 (Version 2)
Quarter: 2025Q2

REPORT INFORMATION
  Report Type: Spontaneous
  Country: US (occurrence: US)
  Receive Date: 20200224
  Receipt Date: 20250513
  Transmission Date: 20250716
  Serious: Yes (Hospitalization, Other)
  Sender: BRISTOL-MYERS SQUIBB COMPANY
  Company Number: US-BRISTOL-MYERS SQUIBB COMPANY-BMS-2020-014823

PATIENT
  Age: 73 Year
  Sex: Female
  Weight: 84.3 kg

DRUGS (5)
  1. ELIQUIS [Suspect]
     Active Substance: APIXABAN
     Indication: Atrial fibrillation
     Route: 048
     Dates: start: 2015
  2. HYDRALAZINE [Suspect]
     Active Substance: HYDRALAZINE HYDROCHLORIDE
     Indication: Hypertension
  3. CARVEDILOL [Suspect]
     Active Substance: CARVEDILOL
     Indication: Hypertension
  4. METFORMIN [Concomitant]
     Active Substance: METFORMIN HYDROCHLORIDE
     Indication: Diabetes mellitus
     Dosage: UNK
  5. DILTIAZEM [Concomitant]
     Active Substance: DILTIAZEM
     Indication: Product used for unknown indication

REACTIONS (18)
  - Bladder cancer [Recovering/Resolving]
  - Blood pressure increased [Recovering/Resolving]
  - Weight decreased [Unknown]
  - Feeling abnormal [Unknown]
  - Illness [Unknown]
  - Pain [Unknown]
  - Contusion [Not Recovered/Not Resolved]
  - Abdominal pain upper [Unknown]
  - Diarrhoea [Unknown]
  - Abdominal discomfort [Unknown]
  - Visual impairment [Unknown]
  - Body height decreased [Unknown]
  - Weight fluctuation [Unknown]
  - Wheezing [Unknown]
  - Throat irritation [Unknown]
  - Cardiac disorder [Unknown]
  - Weight increased [Unknown]
  - Tooth disorder [Unknown]

NARRATIVE: CASE EVENT DATE: 20230301
